FAERS Safety Report 9705168 (Version 3)
Quarter: 2014Q1

REPORT INFORMATION
  Report Type: Spontaneous
  Country: IE (occurrence: IE)
  Receive Date: 20131122
  Receipt Date: 20140101
  Transmission Date: 20141002
  Serious: Yes (Hospitalization)
  Sender: FDA-Public Use
  Company Number: IE-ASTRAZENECA-2013SE84437

PATIENT
  Sex: Female

DRUGS (5)
  1. ARIMIDEX [Suspect]
     Route: 048
  2. ASPIRIN [Concomitant]
  3. ZOPICLONE [Concomitant]
  4. METOPROLOL [Concomitant]
     Dosage: BID
  5. TRIMETHOPRIM [Concomitant]

REACTIONS (2)
  - Dysphagia [Unknown]
  - Intentional drug misuse [Unknown]
